FAERS Safety Report 4416661-7 (Version None)
Quarter: 2004Q3

REPORT INFORMATION
  Report Type: 
  Country: None (occurrence: None)
  Receive Date: 20040802
  Receipt Date: 20040720
  Transmission Date: 20050211
  Serious: Yes (Life-Threatening)
  Sender: FDA-Public Use
  Company Number: 04H-163-0267680-00

PATIENT

DRUGS (1)
  1. MORPHINE SUL INJ [Suspect]
     Indication: POSTOPERATIVE ANALGESIA
     Dosage: 1 MG, 8 MIN LOCKOUT, NOT REPORTED, INTRAVENOUS
     Route: 042

REACTIONS (1)
  - ANAPHYLACTIC REACTION [None]
